FAERS Safety Report 4458231-0 (Version None)
Quarter: 2004Q3

REPORT INFORMATION
  Report Type: 
  Country: None (occurrence: None)
  Receive Date: 20040924
  Receipt Date: 20040430
  Transmission Date: 20050211
  Serious: Yes (Hospitalization)
  Sender: FDA-Public Use
  Company Number: BR-ABBOTT-04P-020-0259613-00

PATIENT
  Sex: Male

DRUGS (15)
  1. RITONAVIR SOFT GELATIN CAPSULES [Suspect]
     Indication: HIV INFECTION
     Route: 048
     Dates: start: 20031020, end: 20040419
  2. RITONAVIR SOFT GELATIN CAPSULES [Suspect]
     Route: 048
     Dates: start: 20040510
  3. TIPRANAVIR [Concomitant]
     Indication: HIV INFECTION
     Route: 048
     Dates: start: 20031020, end: 20040419
  4. TIPRANAVIR [Concomitant]
     Route: 048
     Dates: start: 20040510
  5. TENOFOVIR [Concomitant]
     Indication: HIV INFECTION
     Route: 048
     Dates: start: 20031020, end: 20040419
  6. TENOFOVIR [Concomitant]
     Route: 048
     Dates: start: 20040510
  7. LAMIVUDINE [Concomitant]
     Indication: HIV INFECTION
     Route: 048
     Dates: start: 20031020, end: 20040419
  8. LAMIVUDINE [Concomitant]
     Route: 048
     Dates: start: 20040510
  9. EFAVIRENZ [Concomitant]
     Indication: HIV INFECTION
     Route: 048
     Dates: start: 20031020, end: 20040419
  10. EFAVIRENZ [Concomitant]
     Route: 048
     Dates: start: 20040510
  11. BENZOFIBRATE [Concomitant]
     Indication: HYPERTRIGLYCERIDAEMIA
     Route: 048
     Dates: start: 20031215, end: 20040419
  12. BENZOFIBRATE [Concomitant]
     Route: 048
     Dates: start: 20040524
  13. BACTRIM [Concomitant]
     Indication: INFECTION PROPHYLAXIS
     Dosage: 800/600 MG
     Route: 048
     Dates: end: 20040419
  14. BACTRIM [Concomitant]
     Dosage: 800/600 MG
     Route: 048
     Dates: start: 20040517
  15. DIDANOSINE [Concomitant]
     Indication: DRUG USE FOR UNKNOWN INDICATION
     Route: 048
     Dates: start: 20031020, end: 20040419

REACTIONS (3)
  - MITOCHONDRIAL TOXICITY [None]
  - MYALGIA [None]
  - PANCREATITIS [None]
